FAERS Safety Report 14563933 (Version 1)
Quarter: 2018Q1

REPORT INFORMATION
  Report Type: Report from Study
  Country: ES (occurrence: ES)
  Receive Date: 20180222
  Receipt Date: 20180222
  Transmission Date: 20180509
  Serious: Yes (Hospitalization)
  Sender: FDA-Public Use
  Company Number: ES-TEVA-2018-ES-859493

PATIENT
  Age: 80 Year
  Sex: Female

DRUGS (10)
  1. ATENOLOL 60 [Suspect]
     Active Substance: ATENOLOL
     Dosage: 60 MILLIGRAM DAILY; 1-0-0
     Route: 048
     Dates: start: 20160607, end: 20170427
  2. ALOPURINOL 100 [Concomitant]
     Dosage: 1-0-0
     Route: 048
     Dates: start: 20160607
  3. ALDACTONE [Interacting]
     Active Substance: SPIRONOLACTONE
     Dosage: 1-0-0
     Route: 048
     Dates: start: 20160607, end: 20170427
  4. PRAVASTATINA 40 [Concomitant]
     Dosage: 0-0-1
     Route: 048
     Dates: start: 20160607
  5. PANTOPRAZOL 40 [Concomitant]
     Active Substance: PANTOPRAZOLE SODIUM
     Dosage: 1-0-0
     Route: 048
     Dates: start: 20160607
  6. SEVIKAR 40/05/12.5 [Interacting]
     Active Substance: AMLODIPINE BESYLATE\HYDROCHLOROTHIAZIDE\OLMESARTAN MEDOXOMIL
     Dosage: 1 DOSAGE FORMS DAILY; 1-0-0
     Route: 048
     Dates: start: 20130101
  7. METFORMINA 850 [Concomitant]
     Dosage: 1/2-1-1/2
     Route: 048
     Dates: start: 20160607
  8. APIXABAN 2.5 [Concomitant]
     Dosage: 1-0-0
     Route: 048
     Dates: start: 20160607
  9. METAMIZOL 575 [Concomitant]
     Active Substance: METAMIZOLE MAGNESIUM
     Dosage: 1-1-1
     Route: 048
     Dates: start: 20160607
  10. FUROSEMIDA 40 [Concomitant]
     Dosage: 1-0-0
     Route: 048
     Dates: start: 20160607

REACTIONS (3)
  - Bradycardia [Recovered/Resolved]
  - Hyperkalaemia [Recovered/Resolved]
  - Drug interaction [Unknown]

NARRATIVE: CASE EVENT DATE: 20170427
